FAERS Safety Report 4471668-9 (Version None)
Quarter: 2004Q4

REPORT INFORMATION
  Report Type: 
  Country: None (occurrence: None)
  Receive Date: 20041012
  Receipt Date: 20041007
  Transmission Date: 20050328
  Serious: Yes (Hospitalization)
  Sender: FDA-Public Use
  Company Number: BR-MERCK-0410BRA00286

PATIENT
  Age: 71 Year
  Sex: Female

DRUGS (2)
  1. AMIODARONE HYDROCHLORIDE [Concomitant]
     Indication: CARDIAC FIBRILLATION
     Route: 065
     Dates: start: 20040908
  2. VIOXX [Suspect]
     Indication: OSTEOARTHRITIS
     Route: 048
     Dates: start: 20040728, end: 20040930

REACTIONS (1)
  - ATRIAL FIBRILLATION [None]
